FAERS Safety Report 7523453-9 (Version None)
Quarter: 2011Q2

REPORT INFORMATION
  Report Type: 
  Country: None (occurrence: None)
  Receive Date: 20110603
  Receipt Date: 20110520
  Transmission Date: 20111010
  Serious: Yes (Other)
  Sender: FDA-Public Use
  Company Number: PHHY2011US16793

PATIENT
  Sex: Male
  Weight: 96 kg

DRUGS (1)
  1. AFINITOR [Suspect]
     Indication: MALIGNANT URINARY TRACT NEOPLASM
     Dosage: 10 MG DAILY
     Route: 048
     Dates: start: 20101222, end: 20110316

REACTIONS (15)
  - DYSPNOEA [None]
  - RESPIRATORY RATE INCREASED [None]
  - INFLUENZA [None]
  - LUNG INFILTRATION [None]
  - PLEURAL EFFUSION [None]
  - DIARRHOEA [None]
  - WEIGHT DECREASED [None]
  - NAUSEA [None]
  - RENAL CYST [None]
  - HIATUS HERNIA [None]
  - INFLUENZA LIKE ILLNESS [None]
  - ATELECTASIS [None]
  - FATIGUE [None]
  - PULMONARY MASS [None]
  - COUGH [None]
